FAERS Safety Report 18259136 (Version 5)
Quarter: 2021Q3

REPORT INFORMATION
  Report Type: Spontaneous
  Country: US (occurrence: US)
  Receive Date: 20200911
  Receipt Date: 20210816
  Transmission Date: 20211014
  Serious: Yes (Death, Hospitalization, Other)
  Sender: FDA-Public Use
  Company Number: US-PFIZER INC-2020351854

PATIENT
  Age: 60 Year
  Sex: Female

DRUGS (2)
  1. IBRANCE [Suspect]
     Active Substance: PALBOCICLIB
     Dosage: 125 MG, CYCLIC(1 TAB QD 21 D THEN 7 D OFF)
     Route: 048
     Dates: end: 20210802
  2. IBRANCE [Suspect]
     Active Substance: PALBOCICLIB
     Indication: BREAST CANCER FEMALE
     Dosage: 125 MG, CYCLIC (QD (ONCE A DAY) FOR 21 DAYS THEN OFF FOR 7 DAYS) (125MG BY MOUTH DAILY FOR 21 DAYS)
     Route: 048
     Dates: start: 20200618, end: 202012

REACTIONS (3)
  - Pulmonary embolism [Unknown]
  - Ageusia [Unknown]
  - Neoplasm progression [Fatal]

NARRATIVE: CASE EVENT DATE: 2020
